FAERS Safety Report 5287586-2 (Version None)
Quarter: 2007Q1

REPORT INFORMATION
  Report Type: 
  Country: None (occurrence: None)
  Receive Date: 20070126
  Receipt Date: 20050705
  Transmission Date: 20070707
  Serious: No
  Sender: FDA-Public Use
  Company Number: 2006CT001108

PATIENT
  Age: 61 Year
  Sex: Female
  Weight: 89.8 kg

DRUGS (23)
  1. VENTAVIS [Suspect]
     Indication: PULMONARY HYPERTENSION
     Dosage: 5 UG 6XD INH
     Route: 055
     Dates: start: 20050629, end: 20050701
  2. VENTAVIS [Suspect]
  3. CUPRIMINE [Concomitant]
  4. FUROSEMIDE [Concomitant]
  5. POTASSIUM CHLORIDE [Concomitant]
  6. PREDNISONE TAB [Concomitant]
  7. SPIRONOLACTONE [Concomitant]
  8. VITAMIN CAP [Concomitant]
  9. CALCIUM [Concomitant]
  10. ASCORBIC ACID [Concomitant]
  11. RANITIDINE [Concomitant]
  12. ACETAMINOPHEN [Concomitant]
  13. SILDENAFIL CITRATE [Concomitant]
  14. DETROL [Concomitant]
  15. ZAROXOLYN [Concomitant]
  16. PREVACID [Concomitant]
  17. FOSAMAX [Concomitant]
  18. PHENYTOIN [Concomitant]
  19. IMURAN [Concomitant]
  20. CARDIZEM [Concomitant]
  21. WARFARIN SODIUM [Concomitant]
  22. DESLORATADINE [Concomitant]
  23. OXYGEN [Concomitant]

REACTIONS (5)
  - DIARRHOEA [None]
  - FLUID RETENTION [None]
  - HEADACHE [None]
  - NAUSEA [None]
  - PHARYNGOLARYNGEAL PAIN [None]
